FAERS Safety Report 9669216 (Version 1)
Quarter: 2013Q4

REPORT INFORMATION
  Report Type: Spontaneous
  Country: JP (occurrence: JP)
  Receive Date: 20131105
  Receipt Date: 20131105
  Transmission Date: 20140711
  Serious: Yes (Other)
  Sender: FDA-Public Use
  Company Number: JP-MYLANLABS-2013S1024040

PATIENT
  Sex: Female

DRUGS (2)
  1. CARBOPLATIN [Suspect]
     Indication: OVARIAN CANCER
     Route: 041
     Dates: start: 201205, end: 201209
  2. PACLITAXEL [Concomitant]
     Indication: OVARIAN CANCER
     Route: 041
     Dates: start: 201205, end: 201209

REACTIONS (3)
  - Erythema [Unknown]
  - Oedema [Unknown]
  - Joint contracture [Unknown]
